FAERS Safety Report 7866946-7 (Version None)
Quarter: 2011Q4

REPORT INFORMATION
  Report Type: 
  Country: None (occurrence: None)
  Receive Date: 20111028
  Receipt Date: 20111019
  Transmission Date: 20120403
  Serious: Yes (Hospitalization, Congenital Anomaly)
  Sender: FDA-Public Use
  Company Number: DE-TEVA-305722GER

PATIENT
  Age: 0 Year
  Sex: Male
  Weight: 2.54 kg

DRUGS (7)
  1. PREDNISOLONE [Suspect]
     Route: 064
     Dates: start: 20100804, end: 20110502
  2. HUMIRA [Suspect]
     Route: 064
     Dates: start: 20100804, end: 20110502
  3. CLEXANE 40 [Concomitant]
     Route: 064
     Dates: start: 20100804, end: 20110502
  4. ACETYLSALICYLSAURE [Concomitant]
     Route: 064
     Dates: start: 20100804, end: 20110424
  5. FOLSAURE [Concomitant]
     Route: 064
     Dates: start: 20100804
  6. OMEPRAZOLE [Concomitant]
     Route: 064
     Dates: start: 20101006, end: 20110502
  7. LANSOPRAZOLE [Concomitant]
     Route: 064
     Dates: start: 20100915, end: 20101005

REACTIONS (6)
  - SMALL FOR DATES BABY [None]
  - ATRIAL SEPTAL DEFECT [None]
  - OESOPHAGEAL ATRESIA [None]
  - SYNDACTYLY [None]
  - VENTRICULAR SEPTAL DEFECT [None]
  - PULMONARY ARTERY STENOSIS CONGENITAL [None]
